FAERS Safety Report 15366671 (Version 1)
Quarter: 2018Q3

REPORT INFORMATION
  Report Type: Spontaneous
  Country: GB (occurrence: GB)
  Receive Date: 20180910
  Receipt Date: 20180910
  Transmission Date: 20181010
  Serious: Yes (Hospitalization, Other)
  Sender: FDA-Public Use
  Company Number: GB-GLAXOSMITHKLINE-GB2018159384

PATIENT
  Age: 40 Year
  Sex: Female

DRUGS (1)
  1. MEPOLIZUMAB [Suspect]
     Active Substance: MEPOLIZUMAB
     Indication: ASTHMA
     Dosage: 100MG/1ML
     Route: 058
     Dates: start: 20180810, end: 20180810

REACTIONS (3)
  - Pruritus [Recovered/Resolved]
  - Malaise [Unknown]
  - Chest wall abscess [Recovering/Resolving]

NARRATIVE: CASE EVENT DATE: 20180810
